FAERS Safety Report 5950166-7 (Version None)
Quarter: 2008Q4

REPORT INFORMATION
  Report Type: 
  Country: None (occurrence: None)
  Receive Date: 20081112
  Receipt Date: 20081112
  Transmission Date: 20090506
  Serious: Yes (Other)
  Sender: FDA-Public Use
  Company Number: A0755915A

PATIENT
  Age: 55 Year
  Sex: Female

DRUGS (3)
  1. NICORETTE [Suspect]
     Indication: SMOKING CESSATION THERAPY
     Dosage: 2MG SEE DOSAGE TEXT
     Route: 002
     Dates: end: 20081001
  2. EFFEXOR [Concomitant]
     Indication: PANIC ATTACK
     Route: 048
  3. ACIPHEX [Concomitant]
     Route: 048

REACTIONS (5)
  - INTENTIONAL DRUG MISUSE [None]
  - LIP AND/OR ORAL CAVITY CANCER [None]
  - ORAL INFECTION [None]
  - ORAL PAIN [None]
  - SENSITIVITY OF TEETH [None]
